FAERS Safety Report 6244276-7 (Version None)
Quarter: 2009Q2

REPORT INFORMATION
  Report Type: 
  Country: None (occurrence: None)
  Receive Date: 20090623
  Receipt Date: 20090623
  Transmission Date: 20091009
  Serious: Yes (Hospitalization)
  Sender: FDA-Public Use
  Company Number: None

PATIENT
  Age: 36 Year
  Sex: Male
  Weight: 122.92 kg

DRUGS (1)
  1. WARFARIN [Suspect]
     Dosage: 2 MG EVERY DAY PO
     Route: 048
     Dates: start: 20090615, end: 20090617

REACTIONS (2)
  - ANAL FISSURE [None]
  - GASTROINTESTINAL HAEMORRHAGE [None]
